FAERS Safety Report 5921309-6 (Version None)
Quarter: 2008Q4

REPORT INFORMATION
  Report Type: 
  Country: None (occurrence: None)
  Receive Date: 20081014
  Receipt Date: 20081008
  Transmission Date: 20090506
  Serious: Yes (Death)
  Sender: FDA-Public Use
  Company Number: 2007JP003988

PATIENT
  Age: 70 Year
  Sex: Female
  Weight: 44 kg

DRUGS (11)
  1. PROGRAF [Suspect]
     Indication: RHEUMATOID ARTHRITIS
     Dosage: 1.5 MG, UID/QD; ORAL
     Route: 048
     Dates: start: 20070528, end: 20070820
  2. PREDNISOLONE [Concomitant]
  3. VOLTAREN [Concomitant]
  4. VOLTAREN CAPSULE [Concomitant]
  5. BACACIL (BACAMPICILLIN HYDROCHLORIDE) TABLET [Concomitant]
  6. PARIET (RABEPRAZOLE SODIUM) TABLET [Concomitant]
  7. ONEALFA (ALFACALCIDOL) TABLET [Concomitant]
  8. CYTOTEC [Concomitant]
  9. FOSAMAC (ALENDRONATE SODIUM) TABLET [Concomitant]
  10. DIOVAN [Concomitant]
  11. BUCILLAMINE (BUCILLAMINE) FORUMULATION [Concomitant]

REACTIONS (6)
  - BLOOD LACTATE DEHYDROGENASE INCREASED [None]
  - DIFFUSE ALVEOLAR DAMAGE [None]
  - DYSPNOEA EXERTIONAL [None]
  - INTERSTITIAL LUNG DISEASE [None]
  - PULMONARY FIBROSIS [None]
  - RHEUMATOID LUNG [None]
